FAERS Safety Report 4549177-8 (Version None)
Quarter: 2005Q1

REPORT INFORMATION
  Report Type: 
  Country: None (occurrence: None)
  Receive Date: 20050111
  Receipt Date: 20041222
  Transmission Date: 20050727
  Serious: Yes (Death, Hospitalization)
  Sender: FDA-Public Use
  Company Number: PHBS2004JP17154

PATIENT
  Age: 1 Year
  Sex: Male

DRUGS (5)
  1. METHYLPREDNISOLONE [Concomitant]
     Indication: CORD BLOOD TRANSPLANT THERAPY
  2. ATGAM [Concomitant]
     Indication: CORD BLOOD TRANSPLANT THERAPY
  3. CYCLOSPORINE [Suspect]
     Indication: CORD BLOOD TRANSPLANT THERAPY
  4. BUSULFAN [Concomitant]
  5. CYCLOPHOSPHAMIDE [Concomitant]

REACTIONS (7)
  - DIARRHOEA [None]
  - ENTERITIS [None]
  - GRAFT VERSUS HOST DISEASE [None]
  - INTESTINAL ISCHAEMIA [None]
  - MULTI-ORGAN FAILURE [None]
  - REFRACTORINESS TO PLATELET TRANSFUSION [None]
  - THROMBOTIC MICROANGIOPATHY [None]
